FAERS Safety Report 9564151 (Version 2)
Quarter: 2013Q4

REPORT INFORMATION
  Report Type: Spontaneous
  Country: PT (occurrence: PT)
  Receive Date: 20130930
  Receipt Date: 20131001
  Transmission Date: 20140711
  Serious: Yes (Other)
  Sender: FDA-Public Use
  Company Number: PT-ROCHE-1279851

PATIENT
  Age: 24 Year
  Sex: Female

DRUGS (7)
  1. MABTHERA [Suspect]
     Indication: RHEUMATOID ARTHRITIS
     Route: 065
     Dates: start: 200906
  2. METHOTREXATE [Concomitant]
     Route: 065
  3. FOLIC ACID [Concomitant]
     Route: 065
  4. HYDROXYCHLOROQUINE [Concomitant]
     Route: 065
  5. PREDNISOLONE [Concomitant]
     Dosage: 10 -} 5 MG
     Route: 065
  6. DICLOFENAC [Concomitant]
     Route: 065
  7. INFLIXIMAB [Concomitant]
     Route: 065

REACTIONS (4)
  - Investigation abnormal [Unknown]
  - Arthropathy [Unknown]
  - Rheumatoid arthritis [Unknown]
  - Inflammation [Unknown]
